FAERS Safety Report 5084315-2 (Version None)
Quarter: 2006Q3

REPORT INFORMATION
  Report Type: 
  Country: None (occurrence: None)
  Receive Date: 20060816
  Receipt Date: 20060802
  Transmission Date: 20061208
  Serious: Yes (Other)
  Sender: FDA-Public Use
  Company Number: SPI200600083

PATIENT
  Age: 46 Year
  Sex: Female
  Weight: 63.5036 kg

DRUGS (6)
  1. AMITIZA [Suspect]
     Indication: CONSTIPATION
     Dosage: 24 MCG QD ORAL
     Route: 048
     Dates: start: 20060701, end: 20060701
  2. SYNTHROID [Concomitant]
  3. GLUCOPHAGE /00082701/ (METFORMIN) [Concomitant]
  4. CELEBREX [Concomitant]
  5. CARBIDOPA W/LEVODOPA (LEVODOPA, CARBIDOPA) [Concomitant]
  6. ZELNORM /01470301/ (TEGASEROD) [Concomitant]

REACTIONS (4)
  - BLOOD PRESSURE INCREASED [None]
  - DIZZINESS [None]
  - NAUSEA [None]
  - TACHYCARDIA [None]
